FAERS Safety Report 6830541-9 (Version None)
Quarter: 2010Q3

REPORT INFORMATION
  Report Type: 
  Country: None (occurrence: None)
  Receive Date: 20100707
  Receipt Date: 20100623
  Transmission Date: 20110219
  Serious: Yes (Hospitalization)
  Sender: FDA-Public Use
  Company Number: A-US2010-36767

PATIENT
  Age: 73 Year
  Sex: Female
  Weight: 50.3 kg

DRUGS (16)
  1. TRACLEER [Suspect]
     Indication: PULMONARY ARTERIAL HYPERTENSION
     Dosage: 125 MG, ORAL
     Route: 048
     Dates: start: 20100301
  2. TRACLEER [Suspect]
     Indication: PULMONARY ARTERIAL HYPERTENSION
     Dosage: 125 MG, ORAL
     Route: 048
     Dates: start: 20100501
  3. COUMADIN [Concomitant]
  4. ADVAIR DISKUS 100/50 [Concomitant]
  5. ALBUTEROL (SALBUTAMOL SULFATE) [Concomitant]
  6. CARDIZEM [Concomitant]
  7. COMBIVENT [Concomitant]
  8. DETROL [Concomitant]
  9. DIAZEPAM [Concomitant]
  10. DIOVAN [Concomitant]
  11. FUROSEMIDE [Concomitant]
  12. HYDROCODONE BITARTRATE [Concomitant]
  13. POTASSIUM CHLORIDE [Concomitant]
  14. LANTUS [Concomitant]
  15. NOVOLOG [Concomitant]
  16. ZETIA [Concomitant]

REACTIONS (3)
  - GANGRENE [None]
  - OSTEOMYELITIS [None]
  - TREMOR [None]
